FAERS Safety Report 6572177-3 (Version None)
Quarter: 2010Q1

REPORT INFORMATION
  Report Type: 
  Country: None (occurrence: None)
  Receive Date: 20100205
  Receipt Date: 20100202
  Transmission Date: 20100710
  Serious: Yes (Other)
  Sender: FDA-Public Use
  Company Number: B0630752A

PATIENT
  Age: 3 Year
  Sex: Male

DRUGS (1)
  1. AUGMENTIN [Suspect]
     Route: 048
     Dates: start: 20100122, end: 20100128

REACTIONS (4)
  - ERYTHEMA MULTIFORME [None]
  - PYREXIA [None]
  - RASH GENERALISED [None]
  - SKIN LESION [None]
